FAERS Safety Report 5945845-1 (Version None)
Quarter: 2008Q4

REPORT INFORMATION
  Report Type: 
  Country: None (occurrence: None)
  Receive Date: 20081106
  Receipt Date: 20081029
  Transmission Date: 20090506
  Serious: Yes (Hospitalization, Other)
  Sender: FDA-Public Use
  Company Number: 2008BI020992

PATIENT
  Age: 37 Year
  Sex: Male

DRUGS (10)
  1. TYSABRI [Suspect]
     Indication: CROHN'S DISEASE
     Dosage: IV
     Route: 042
     Dates: start: 20080522, end: 20080728
  2. PREDNISONE TAB [Concomitant]
  3. PREVACID [Concomitant]
  4. REGLAN [Concomitant]
  5. ALLOPURINOL [Concomitant]
  6. LASIX [Concomitant]
  7. PERCOCET [Concomitant]
  8. LISINOPRIL [Concomitant]
  9. POTASSIUM CHLORIDE [Concomitant]
  10. . [Concomitant]

REACTIONS (15)
  - ABDOMINAL PAIN [None]
  - CONDITION AGGRAVATED [None]
  - CONFUSIONAL STATE [None]
  - DIABETES MELLITUS [None]
  - DISORIENTATION [None]
  - ENCEPHALOPATHY [None]
  - HYPERGLYCAEMIA [None]
  - LETHARGY [None]
  - MENTAL STATUS CHANGES [None]
  - PYREXIA [None]
  - RENAL FAILURE [None]
  - RIB FRACTURE [None]
  - URINARY TRACT INFECTION [None]
  - UROSEPSIS [None]
  - WHITE BLOOD CELL COUNT INCREASED [None]
